FAERS Safety Report 23867705 (Version 1)
Quarter: 2024Q2

REPORT INFORMATION
  Report Type: Spontaneous
  Country: US (occurrence: US)
  Receive Date: 20240517
  Receipt Date: 20240517
  Transmission Date: 20240716
  Serious: Yes (Hospitalization, Other)
  Sender: FDA-Public Use
  Company Number: US-HIKMA PHARMACEUTICALS USA INC.-US-H14001-24-04113

PATIENT

DRUGS (12)
  1. CYCLOPHOSPHAMIDE [Suspect]
     Active Substance: CYCLOPHOSPHAMIDE
     Indication: Product used for unknown indication
     Dosage: 250 MILLIGRAM/SQ. METER, 60-74 YRS, CYCLE: 1, 3, 5, 7 , EVERY 12 HRS X 6 DOSES
     Route: 042
  2. CYTARABINE [Suspect]
     Active Substance: CYTARABINE
     Indication: Product used for unknown indication
     Dosage: 100 MILLIGRAM, CYCLE 1-4, DAY 2, DAY 8.
     Route: 037
     Dates: start: 20240126, end: 20240126
  3. CYTARABINE [Suspect]
     Active Substance: CYTARABINE
     Dosage: 4400 MILLIGRAM, 60-74 YRS: 1 G/M2/DOSE, CYCLE: 2, 4, 6, 8, EVERY 12 HRS X 4, DAYS 2, 3),
     Route: 042
     Dates: start: 20240126, end: 20240127
  4. DEXAMETHASONE [Suspect]
     Active Substance: DEXAMETHASONE
     Indication: Product used for unknown indication
     Dosage: 20 MILLIGRAM, 60-74 YRS CYCLE: 1, 3, 5, 7; DAYS 1-4, DAYS 11-14
     Route: 065
  5. DOXORUBICIN [Suspect]
     Active Substance: DOXORUBICIN
     Indication: Product used for unknown indication
     Dosage: 37.5 MILLIGRAM/SQ. METER, 60-74 YRS, CYCLE: 1, 3, 5, 7, DAY 4,
     Route: 042
  6. INOTUZUMAB OZOGAMICIN [Suspect]
     Active Substance: INOTUZUMAB OZOGAMICIN
     Indication: Acute lymphocytic leukaemia
     Dosage: UNKNOWN
     Route: 065
     Dates: end: 20240201
  7. METHOTREXATE SODIUM [Suspect]
     Active Substance: METHOTREXATE SODIUM
     Dosage: 500 MILLIGRAM/SQ. METER, CYCL2, 4, 6, 8, DAY 1.,E:
     Route: 042
     Dates: end: 20240201
  8. METHOTREXATE SODIUM [Suspect]
     Active Substance: METHOTREXATE SODIUM
     Indication: Product used for unknown indication
     Dosage: 6 MILLIGRAM, CYCLE: 1-4, DAY 2, DAY 8
     Route: 037
  9. METHYLPREDNISOLONE ACETATE [Suspect]
     Active Substance: METHYLPREDNISOLONE ACETATE
     Indication: B-cell type acute leukaemia
     Dosage: 50 MILLIGRAM, CYCLE: 2, 4, 6, 8, EVERY 12 HRS X 6 DOSES, DAYS 1-3.,
     Route: 042
     Dates: end: 20240127
  10. RITUXIMAB [Suspect]
     Active Substance: RITUXIMAB
     Indication: Product used for unknown indication
     Dosage: 375 MILLIGRAM/SQ. METER, CYCLE: 1-4; DAY 1, DAY 8.,
     Route: 042
  11. VINCRISTINE SULFATE [Suspect]
     Active Substance: VINCRISTINE SULFATE
     Indication: Product used for unknown indication
     Dosage: 2 MILLIGRAM, 60-74 YRS: CYCLE: 1, 3, 5, 7, DAY 1, DAY 8
     Route: 042
  12. MESNA [Concomitant]
     Active Substance: MESNA
     Indication: Product used for unknown indication
     Dosage: UNKNOWN
     Route: 042

REACTIONS (5)
  - Upper respiratory tract infection [Recovering/Resolving]
  - Dyspnoea [Recovering/Resolving]
  - Productive cough [Recovering/Resolving]
  - Human rhinovirus test positive [Unknown]
  - Influenza A virus test positive [Unknown]

NARRATIVE: CASE EVENT DATE: 20240221
